FAERS Safety Report 14820041 (Version 1)
Quarter: 2018Q2

REPORT INFORMATION
  Report Type: Spontaneous
  Country: US (occurrence: US)
  Receive Date: 20180403
  Receipt Date: 20180403
  Transmission Date: 20180711
  Serious: No
  Sender: FDA-Public Use
  Company Number: None

PATIENT
  Sex: Female

DRUGS (2)
  1. REFRESH TEARS [Suspect]
     Active Substance: CARBOXYMETHYLCELLULOSE SODIUM
  2. SYSTANE NOS [Suspect]
     Active Substance: HYPROMELLOSE 2910 (4000 MPA.S)\ POLYETHYLENE GLYCOL 400\PROPYLENE GLYCOL

REACTIONS (1)
  - Treatment failure [None]
